FAERS Safety Report 8882739 (Version 1)
Quarter: 2012Q4

REPORT INFORMATION
  Report Type: 
  Country: US (occurrence: US)
  Receive Date: 20121105
  Receipt Date: 20121105
  Transmission Date: 20130627
  Serious: Yes (Other)
  Sender: FDA-Public Use
  Company Number: US-ELI_LILLY_AND_COMPANY-US201210009910

PATIENT
  Age: 45 Year
  Sex: Female

DRUGS (8)
  1. FLUOXETINE HYDROCHLORIDE [Suspect]
  2. ADDERALL [Concomitant]
  3. AXERT [Concomitant]
  4. CALCIUM [Concomitant]
  5. MIRAPEX [Concomitant]
  6. LOVAZA [Concomitant]
  7. VITAMIN D [Concomitant]
  8. ASPIRIN [Concomitant]

REACTIONS (2)
  - Thrombosis in device [Unknown]
  - Drug interaction [Unknown]
